FAERS Safety Report 23776842 (Version 2)
Quarter: 2024Q2

REPORT INFORMATION
  Report Type: Report from Study
  Country: US (occurrence: US)
  Receive Date: 20240424
  Receipt Date: 20240529
  Transmission Date: 20240716
  Serious: Yes (Hospitalization, Other)
  Sender: FDA-Public Use
  Company Number: US-GILEAD-2024-0670288

PATIENT
  Age: 65 Year
  Sex: Female

DRUGS (25)
  1. AZTREONAM LYSINE [Suspect]
     Active Substance: AZTREONAM LYSINE
     Indication: Cystic fibrosis
     Dosage: INHALE 1 ML (75 MG) VIA ALTERA NEBULIZER 3 TIMES A DAY FOR 14 DAYS ON, 14 DAYS OFF, REPEAT
     Route: 055
     Dates: start: 202206
  2. AZTREONAM LYSINE [Suspect]
     Active Substance: AZTREONAM LYSINE
     Indication: Cystic fibrosis lung
  3. SYMDEKO [Concomitant]
     Active Substance: IVACAFTOR\TEZACAFTOR
  4. HUMALOG [Concomitant]
     Active Substance: INSULIN LISPRO
  5. COZAAR [Concomitant]
     Active Substance: LOSARTAN POTASSIUM
  6. SYNTHROID [Concomitant]
     Active Substance: LEVOTHYROXINE SODIUM
  7. LANTUS [Concomitant]
     Active Substance: INSULIN GLARGINE
  8. FLONASE [Concomitant]
     Active Substance: FLUTICASONE PROPIONATE
  9. CRESTOR [Concomitant]
     Active Substance: ROSUVASTATIN CALCIUM
  10. ALBUTEROL SULFATE [Concomitant]
     Active Substance: ALBUTEROL SULFATE
  11. SPIRIVA [Concomitant]
     Active Substance: TIOTROPIUM BROMIDE MONOHYDRATE
  12. ATROVENT [Concomitant]
     Active Substance: IPRATROPIUM BROMIDE
  13. MELATONIN [Concomitant]
     Active Substance: MELATONIN
  14. KRILL OIL [Concomitant]
     Active Substance: DIETARY SUPPLEMENT\KRILL OIL
  15. CALCIUM\VITAMIN D [Concomitant]
     Active Substance: CALCIUM\VITAMIN D
  16. ONDANSETRON [Concomitant]
     Active Substance: ONDANSETRON
  17. LASIX [Concomitant]
     Active Substance: FUROSEMIDE
  18. LOPRESSOR [Concomitant]
     Active Substance: METOPROLOL TARTRATE
  19. SODIUM CHLORIDE [Concomitant]
     Active Substance: SODIUM CHLORIDE
  20. PULMOZYME [Concomitant]
     Active Substance: DORNASE ALFA
  21. NORTRIPTYLINE [Concomitant]
     Active Substance: NORTRIPTYLINE
  22. OMEPRAZOLE [Concomitant]
     Active Substance: DONEPEZIL HYDROCHLORIDE\OMEPRAZOLE\OMEPRAZOLE MAGNESIUM
  23. AZITHROMYCIN [Concomitant]
     Active Substance: AZITHROMYCIN
  24. ZENPEP [Concomitant]
     Active Substance: PANCRELIPASE AMYLASE\PANCRELIPASE LIPASE\PANCRELIPASE PROTEASE
  25. FOSAMAX [Concomitant]
     Active Substance: ALENDRONATE SODIUM

REACTIONS (3)
  - Transplant evaluation [Not Recovered/Not Resolved]
  - Lung transplant [Not Recovered/Not Resolved]
  - Off label use [Not Recovered/Not Resolved]

NARRATIVE: CASE EVENT DATE: 20220601
